FAERS Safety Report 9822633 (Version 1)
Quarter: 2014Q1

REPORT INFORMATION
  Report Type: Report from Study
  Country: MX (occurrence: MX)
  Receive Date: 20140116
  Receipt Date: 20140116
  Transmission Date: 20141002
  Serious: Yes (Life-Threatening)
  Sender: FDA-Public Use
  Company Number: PHHY2014MX004881

PATIENT
  Age: 77 Year
  Sex: Female
  Weight: 58.5 kg

DRUGS (4)
  1. ACLASTA [Suspect]
     Indication: OSTEOPOROSIS
     Dosage: 5 MG/100ML ANNUALLY
     Route: 042
     Dates: start: 20131210
  2. RITALINA [Suspect]
     Dosage: UNK UKN, UNK
     Route: 048
     Dates: start: 2013, end: 2013
  3. FLUOXETINE [Concomitant]
     Indication: DEPRESSION
     Dosage: 1 UKN, IN THE MORNING
     Dates: start: 2009
  4. CLONAZEPAM [Concomitant]
     Indication: DEPRESSION
     Dosage: 1 UKN, AT NIGHT
     Dates: start: 2009

REACTIONS (2)
  - Suicidal ideation [Unknown]
  - Chondropathy [Not Recovered/Not Resolved]
